FAERS Safety Report 8001345-9 (Version None)
Quarter: 2011Q4

REPORT INFORMATION
  Report Type: 
  Country: None (occurrence: None)
  Receive Date: 20111222
  Receipt Date: 20111219
  Transmission Date: 20120403
  Serious: Yes (Life-Threatening, Other)
  Sender: FDA-Public Use
  Company Number: JP-PFIZER INC-2011308045

PATIENT
  Age: 84 Year
  Sex: Female

DRUGS (6)
  1. LYRICA [Suspect]
     Dosage: 50 MG/DAY
     Route: 048
     Dates: start: 20110825
  2. RECALBON [Concomitant]
     Dosage: 1MG/DAY
     Route: 048
  3. TRICHLORMETHIAZIDE [Concomitant]
     Dosage: 2MG/DAY
     Route: 048
  4. SIGMART [Concomitant]
     Dosage: 15MG/DAY
     Route: 048
  5. ASPIRIN [Concomitant]
     Dosage: 100MG/DAY
     Route: 048
  6. LIPITOR [Concomitant]
     Dosage: 10MG/DAY
     Route: 048

REACTIONS (1)
  - INTERSTITIAL LUNG DISEASE [None]
